FAERS Safety Report 23426669 (Version 1)
Quarter: 2024Q1

REPORT INFORMATION
  Report Type: Spontaneous
  Country: US (occurrence: US)
  Receive Date: 20240122
  Receipt Date: 20240122
  Transmission Date: 20240409
  Serious: Yes (Hospitalization, Other)
  Sender: FDA-Public Use
  Company Number: US-ALEMBIC PHARMACUETICALS LIMITED-2024SCAL000024

PATIENT

DRUGS (5)
  1. BUPROPION HYDROCHLORIDE [Suspect]
     Active Substance: BUPROPION HYDROCHLORIDE
     Indication: Major depression
     Dosage: 13.5 GRAM
     Route: 065
  2. CLONIDINE HYDROCHLORIDE [Suspect]
     Active Substance: CLONIDINE HYDROCHLORIDE
     Indication: Attention deficit hyperactivity disorder
     Dosage: 6 MILLIGRAM
     Route: 065
  3. FLUOXETINE [Suspect]
     Active Substance: FLUOXETINE HYDROCHLORIDE
     Indication: Major depression
     Dosage: 1.2 GRAM
     Route: 065
  4. QUETIAPINE FUMARATE [Suspect]
     Active Substance: QUETIAPINE FUMARATE
     Indication: Major depression
     Dosage: 6 GRAM
     Route: 065
  5. GABAPENTIN [Suspect]
     Active Substance: GABAPENTIN
     Indication: Generalised anxiety disorder
     Dosage: 9 GRAM
     Route: 065

REACTIONS (27)
  - Toxicity to various agents [Recovered/Resolved]
  - Pupillary light reflex tests abnormal [Unknown]
  - Hypotonia [Unknown]
  - Blood lactic acid increased [Unknown]
  - Systolic dysfunction [Recovered/Resolved]
  - Ventricular hypokinesia [Unknown]
  - Ejection fraction decreased [Recovered/Resolved]
  - Acute respiratory distress syndrome [Unknown]
  - Haemodynamic instability [Unknown]
  - Lung infiltration [Unknown]
  - Electrolyte imbalance [Unknown]
  - Cardiotoxicity [Unknown]
  - Neurotoxicity [Unknown]
  - Acidosis [Unknown]
  - Normochromic normocytic anaemia [Unknown]
  - Bundle branch block left [Unknown]
  - Blood creatine phosphokinase increased [Unknown]
  - Serotonin syndrome [Unknown]
  - Electrocardiogram QT prolonged [Recovered/Resolved]
  - Speech disorder [Unknown]
  - Electrocardiogram QRS complex prolonged [Unknown]
  - Respiratory failure [Unknown]
  - Myoclonus [Unknown]
  - Agitation [Unknown]
  - Hypotension [Recovered/Resolved]
  - Seizure [Unknown]
  - Intentional overdose [Unknown]
